FAERS Safety Report 8774187 (Version 2)
Quarter: 2012Q4

REPORT INFORMATION
  Report Type: 
  Country: JP (occurrence: JP)
  Receive Date: 20120907
  Receipt Date: 20120907
  Transmission Date: 20130627
  Serious: Yes (Other)
  Sender: FDA-Public Use
  Company Number: JP-NAPPMUNDI-MAG-2012-0002214

PATIENT
  Age: 68 Year
  Sex: Female

DRUGS (3)
  1. BUPRENORPHINE [Suspect]
     Indication: ANALGESIC THERAPY
     Dosage: 5 mcg, q1h
     Route: 062
     Dates: start: 20120319, end: 20120403
  2. BUPRENORPHINE [Suspect]
     Indication: BACK PAIN
  3. BUPRENORPHINE [Suspect]
     Indication: OSTEOARTHRITIS

REACTIONS (1)
  - Blood glucose increased [Recovered/Resolved]
